FAERS Safety Report 9769009 (Version 1)
Quarter: 2013Q3

REPORT INFORMATION
  Report Type: Spontaneous
  Country: ES (occurrence: None)
  Receive Date: 20130901
  Receipt Date: 20130901
  Transmission Date: 20140515
  Serious: Yes (Death, Hospitalization)
  Sender: FDA-Public Use
  Company Number: 2013SA074728

PATIENT
  Age: 68 Year
  Sex: Male

DRUGS (4)
  1. AFLIBERCEPT [Suspect]
     Indication: COLORECTAL CANCER
     Route: 042
     Dates: start: 20130531, end: 20130531
  2. 5-FU (FLUOROURACIL) [Suspect]
     Indication: COLORECTAL CANCER
     Route: 040
     Dates: start: 20130531, end: 20130531
  3. IRINOTECAN (IRINOTECAN) [Suspect]
     Indication: COLORECTAL CANCER
     Route: 042
     Dates: start: 20130531, end: 20130531
  4. LEUCOVORIN (FOLINIC ACID) [Suspect]
     Indication: COLORECTAL CANCER
     Route: 042
     Dates: start: 20130531, end: 20130531

REACTIONS (2)
  - Hip fracture [None]
  - Acute pulmonary oedema [None]
